FAERS Safety Report 13435803 (Version 1)
Quarter: 2017Q2

REPORT INFORMATION
  Report Type: Spontaneous
  Country: US (occurrence: US)
  Receive Date: 20170412
  Receipt Date: 20170412
  Transmission Date: 20170830
  Serious: No
  Sender: FDA-Public Use
  Company Number: None

PATIENT
  Age: 87 Year
  Sex: Male
  Weight: 56.7 kg

DRUGS (8)
  1. MANUKA HONEY [Concomitant]
  2. DEXILANT [Suspect]
     Active Substance: DEXLANSOPRAZOLE
     Indication: ABDOMINAL PAIN UPPER
     Dosage: ?          QUANTITY:1 CAPSULE(S);?
     Route: 048
     Dates: start: 20170328, end: 20170403
  3. AMLODIPINE [Concomitant]
     Active Substance: AMLODIPINE BESYLATE
  4. PREDNISONE. [Concomitant]
     Active Substance: PREDNISONE
  5. ATORVASTATIN [Concomitant]
     Active Substance: ATORVASTATIN
  6. RABEPRAZOLE [Concomitant]
     Active Substance: RABEPRAZOLE
  7. FISH OIL [Concomitant]
     Active Substance: FISH OIL
  8. VITAMIN D3 [Concomitant]
     Active Substance: CHOLECALCIFEROL

REACTIONS (9)
  - Diarrhoea [None]
  - Nausea [None]
  - Unevaluable event [None]
  - Dizziness [None]
  - Vomiting [None]
  - Asthenia [None]
  - Flatulence [None]
  - Tremor [None]
  - Abdominal pain upper [None]

NARRATIVE: CASE EVENT DATE: 20170403
